FAERS Safety Report 10589483 (Version 3)
Quarter: 2014Q4

REPORT INFORMATION
  Report Type: Spontaneous
  Country: US (occurrence: None)
  Receive Date: 20141114
  Receipt Date: 20141223
  Transmission Date: 20150529
  Serious: Yes (Other)
  Sender: FDA-Public Use
  Company Number: US2014GSK019874

PATIENT
  Age: 64 Year
  Sex: Male
  Weight: 59 kg

DRUGS (15)
  1. AMITRIPTYLINE [Concomitant]
     Active Substance: AMITRIPTYLINE
  2. ACYCLOVIR. [Concomitant]
     Active Substance: ACYCLOVIR
  3. LYRICA [Concomitant]
     Active Substance: PREGABALIN
  4. VITAMIN D [Concomitant]
     Active Substance: CHOLECALCIFEROL
  5. TRIUMEQ [Suspect]
     Active Substance: ABACAVIR SULFATE\DOLUTEGRAVIR SODIUM\LAMIVUDINE
     Indication: HIV INFECTION
     Route: 048
     Dates: start: 20141004, end: 20141027
  6. EFAVIRENZ [Concomitant]
     Active Substance: EFAVIRENZ
  7. TESTIM [Concomitant]
     Active Substance: TESTOSTERONE
  8. LEVOTHYROXINE [Concomitant]
     Active Substance: LEVOTHYROXINE
  9. LISINOPRIL. [Concomitant]
     Active Substance: LISINOPRIL
  10. OXANDROLONE. [Concomitant]
     Active Substance: OXANDROLONE
  11. LAMIVUDINE AND ZIDOVUDINE [Concomitant]
     Active Substance: LAMIVUDINE\ZIDOVUDINE
  12. NAMENDA [Concomitant]
     Active Substance: MEMANTINE HYDROCHLORIDE
  13. CRESTOR [Concomitant]
     Active Substance: ROSUVASTATIN CALCIUM
  14. RANITIDINE [Concomitant]
     Active Substance: RANITIDINE\RANITIDINE HYDROCHLORIDE
  15. VITAMIN B [Concomitant]
     Active Substance: VITAMIN B

REACTIONS (4)
  - Syncope [None]
  - Eye movement disorder [None]
  - Tremor [None]
  - Seizure [None]

NARRATIVE: CASE EVENT DATE: 20141025
